FAERS Safety Report 25831369 (Version 2)
Quarter: 2025Q4

REPORT INFORMATION
  Report Type: Report from Study
  Country: US (occurrence: US)
  Receive Date: 20250922
  Receipt Date: 20251001
  Transmission Date: 20260118
  Serious: Yes (Hospitalization, Other)
  Sender: TAKEDA
  Company Number: US-TAKEDA-2025TUS078345

PATIENT
  Sex: Female
  Weight: 26 kg

DRUGS (10)
  1. TEDUGLUTIDE [Suspect]
     Active Substance: TEDUGLUTIDE
     Indication: Short-bowel syndrome
     Dosage: 0.09 MILLILITER, QD
     Dates: start: 202108
  2. TEDUGLUTIDE [Suspect]
     Active Substance: TEDUGLUTIDE
     Indication: Gastroschisis
     Dosage: UNK UNK, Q2HR
     Dates: start: 20210831
  3. TEDUGLUTIDE [Suspect]
     Active Substance: TEDUGLUTIDE
     Dosage: UNK
  4. TEDUGLUTIDE [Suspect]
     Active Substance: TEDUGLUTIDE
  5. LORATADINE [Concomitant]
     Active Substance: LORATADINE
     Dosage: UNK UNK, QD
  6. CALCIUM CARBONATE [Concomitant]
     Active Substance: CALCIUM CARBONATE
     Dosage: UNK UNK, BID
  7. FLAGYL [Concomitant]
     Active Substance: METRONIDAZOLE\METRONIDAZOLE HYDROCHLORIDE
     Indication: Short-bowel syndrome
     Dosage: UNK UNK, TID
  8. FLAGYL [Concomitant]
     Active Substance: METRONIDAZOLE\METRONIDAZOLE HYDROCHLORIDE
     Indication: Gastrointestinal microorganism overgrowth
  9. RIFAXIMIN [Concomitant]
     Active Substance: RIFAXIMIN
     Indication: Short-bowel syndrome
     Dosage: UNK UNK, TID
  10. RIFAXIMIN [Concomitant]
     Active Substance: RIFAXIMIN
     Indication: Gastrointestinal microorganism overgrowth

REACTIONS (3)
  - Intestinal obstruction [Recovered/Resolved]
  - Gastrointestinal microorganism overgrowth [Recovered/Resolved]
  - Small intestinal obstruction [Unknown]

NARRATIVE: CASE EVENT DATE: 20250826
